FAERS Safety Report 6016028-4 (Version None)
Quarter: 2008Q4

REPORT INFORMATION
  Report Type: 
  Country: None (occurrence: None)
  Receive Date: 20081222
  Receipt Date: 20081218
  Transmission Date: 20090506
  Serious: Yes (Other)
  Sender: FDA-Public Use
  Company Number: A0736427A

PATIENT
  Age: 70 Year
  Sex: Female
  Weight: 77.7 kg

DRUGS (9)
  1. COMMIT [Suspect]
     Indication: SMOKING CESSATION THERAPY
     Dosage: 8LOZ PER DAY
     Route: 002
     Dates: start: 20050501
  2. HYDROCHLOROTHIAZIDE [Concomitant]
  3. METOPROLOL TARTRATE [Concomitant]
     Route: 048
  4. ASPIRIN [Concomitant]
     Route: 048
  5. GLUCOSAMINE [Concomitant]
     Route: 048
  6. ESTRADIOL [Concomitant]
     Route: 048
  7. AVANDAMET [Concomitant]
     Route: 048
  8. XANAX [Concomitant]
     Dosage: 1MG THREE TIMES PER DAY
     Route: 048
  9. WELLBUTRIN [Concomitant]
     Route: 048

REACTIONS (2)
  - DIABETES MELLITUS [None]
  - INTENTIONAL DRUG MISUSE [None]
